FAERS Safety Report 20922364 (Version 4)
Quarter: 2022Q4

REPORT INFORMATION
  Report Type: Spontaneous
  Country: US (occurrence: US)
  Receive Date: 20220607
  Receipt Date: 20221128
  Transmission Date: 20230113
  Serious: Yes (Hospitalization, Other)
  Sender: FDA-Public Use
  Company Number: US-Calliditas-2022CAL00108

PATIENT
  Age: 64 Year
  Sex: Female

DRUGS (14)
  1. TARPEYO [Suspect]
     Active Substance: BUDESONIDE
     Indication: IgA nephropathy
     Dosage: 16 MG (4 MG CAPSULES) ONCE DAILY
     Route: 048
     Dates: start: 20220518, end: 202205
  2. PROCARDIA [Concomitant]
     Active Substance: NIFEDIPINE
  3. LABETALOL [Concomitant]
     Active Substance: LABETALOL\LABETALOL HYDROCHLORIDE
     Dosage: TIME INTERVAL:
  4. LOSARTAN [Concomitant]
     Active Substance: LOSARTAN
  5. CALCITRIOL [Concomitant]
     Active Substance: CALCITRIOL
  6. PRAVASTATIN [Concomitant]
     Active Substance: PRAVASTATIN
  7. ZETIA [Concomitant]
     Active Substance: EZETIMIBE
  8. LEVOTHYROXINE [Concomitant]
     Active Substance: LEVOTHYROXINE
  9. VICTOZA [Concomitant]
     Active Substance: LIRAGLUTIDE
  10. BACLOFEN [Concomitant]
     Active Substance: BACLOFEN
     Dosage: TIME INTERVAL:
  11. XALATAN [Concomitant]
     Active Substance: LATANOPROST
  12. ELIQUIS [Concomitant]
     Active Substance: APIXABAN
  13. OMEGA-3 FATTY ACIDS [Concomitant]
     Active Substance: OMEGA-3 FATTY ACIDS
  14. VITAMIN C [Concomitant]
     Active Substance: ASCORBIC ACID

REACTIONS (7)
  - Palpitations [Recovering/Resolving]
  - Arrhythmia [Recovering/Resolving]
  - Atrial fibrillation [Recovering/Resolving]
  - Prescribed underdose [Unknown]
  - Pneumonia [Recovering/Resolving]
  - Stress [Recovering/Resolving]
  - Renal impairment [Unknown]

NARRATIVE: CASE EVENT DATE: 20221001
